FAERS Safety Report 6168737-4 (Version None)
Quarter: 2009Q2

REPORT INFORMATION
  Report Type: 
  Country: None (occurrence: None)
  Receive Date: 20090427
  Receipt Date: 20090414
  Transmission Date: 20091009
  Serious: Yes (Disabling, Other)
  Sender: FDA-Public Use
  Company Number: US-MERCK-0810USA04095

PATIENT
  Age: 64 Year
  Sex: Female

DRUGS (2)
  1. FOSAMAX [Suspect]
     Indication: OSTEOPOROSIS
     Route: 048
     Dates: start: 19980101, end: 20060101
  2. FOSAMAX [Suspect]
     Indication: OSTEOARTHRITIS
     Route: 048
     Dates: start: 19980101, end: 20060101

REACTIONS (8)
  - ARTHROPATHY [None]
  - CARDIAC MURMUR [None]
  - DENTAL CARIES [None]
  - DEPRESSION [None]
  - HIATUS HERNIA [None]
  - JAW DISORDER [None]
  - ORAL TORUS [None]
  - OSTEONECROSIS [None]
